FAERS Safety Report 17240057 (Version 2)
Quarter: 2020Q1

REPORT INFORMATION
  Report Type: Spontaneous
  Country: US (occurrence: US)
  Receive Date: 20200107
  Receipt Date: 20200107
  Transmission Date: 20200409
  Serious: Yes (Hospitalization, Other)
  Sender: FDA-Public Use
  Company Number: US-SHIRE-US202000026

PATIENT
  Age: 46 Year
  Sex: Female

DRUGS (1)
  1. NATPARA (PARATHYROID HORMONE) [Suspect]
     Active Substance: PARATHYROID HORMONE
     Indication: PRODUCT USED FOR UNKNOWN INDICATION
     Dosage: 75 MICROGRAM, 1X/DAY:QD
     Route: 058
     Dates: start: 20170331

REACTIONS (6)
  - Blood calcium decreased [Unknown]
  - Migraine [Unknown]
  - Tetany [Unknown]
  - Intentional device use issue [Unknown]
  - Incorrect dose administered [Unknown]
  - Chest pain [Unknown]

NARRATIVE: CASE EVENT DATE: 20191126
